FAERS Safety Report 8809308 (Version 1)
Quarter: 2012Q4

REPORT INFORMATION
  Report Type: Spontaneous
  Country: US (occurrence: None)
  Receive Date: 20120924
  Receipt Date: 20120924
  Transmission Date: 20130627
  Serious: No
  Sender: FDA-Public Use
  Company Number: None

PATIENT
  Age: 56 Year
  Sex: Female
  Weight: 61.24 kg

DRUGS (1)
  1. ACTONEL [Suspect]
     Indication: OSTEOPENIA
     Route: 048
     Dates: start: 20080101, end: 20110501

REACTIONS (2)
  - Exostosis [None]
  - Bone disorder [None]
